FAERS Safety Report 13661121 (Version 1)
Quarter: 2017Q2

REPORT INFORMATION
  Report Type: Spontaneous
  Country: BR (occurrence: BR)
  Receive Date: 20170616
  Receipt Date: 20170616
  Transmission Date: 20170830
  Serious: Yes (Other)
  Sender: FDA-Public Use
  Company Number: PHHY2017BR086430

PATIENT
  Age: 49 Year
  Sex: Female

DRUGS (1)
  1. CARBAMAZEPINE. [Suspect]
     Active Substance: CARBAMAZEPINE
     Indication: EPILEPSY
     Route: 065

REACTIONS (5)
  - Disease recurrence [Recovered/Resolved]
  - Hypotension [Recovered/Resolved]
  - Hypertensive crisis [Recovered/Resolved]
  - Epilepsy [Recovered/Resolved]
  - Blood catecholamines increased [Recovered/Resolved]
